FAERS Safety Report 23433321 (Version 1)
Quarter: 2024Q1

REPORT INFORMATION
  Report Type: Spontaneous
  Country: CN (occurrence: CN)
  Receive Date: 20240123
  Receipt Date: 20240123
  Transmission Date: 20240409
  Serious: Yes (Other)
  Sender: FDA-Public Use
  Company Number: CN-FreseniusKabi-FK202401175

PATIENT
  Age: 75 Year
  Sex: Female
  Weight: 52 kg

DRUGS (1)
  1. KABIVEN [Suspect]
     Active Substance: AMINO ACIDS\ANHYDROUS DEXTROSE\CALCIUM CHLORIDE\MAGNESIUM SULFATE HEPTAHYDRATE\POTASSIUM CHLORIDE\SO
     Indication: Nutritional supplementation
     Dosage: FORM OF ADMIN: INJECTION
     Route: 041
     Dates: start: 20240115, end: 20240115

REACTIONS (3)
  - Palpitations [Recovering/Resolving]
  - Chest discomfort [Recovering/Resolving]
  - Blood pressure increased [Recovering/Resolving]

NARRATIVE: CASE EVENT DATE: 20240115
